FAERS Safety Report 6250361-6 (Version None)
Quarter: 2009Q2

REPORT INFORMATION
  Report Type: 
  Country: None (occurrence: None)
  Receive Date: 20090630
  Receipt Date: 20090618
  Transmission Date: 20091009
  Serious: Yes (Congenital Anomaly)
  Sender: FDA-Public Use
  Company Number: GB-JNJFOC-20090607036

PATIENT
  Sex: Male

DRUGS (2)
  1. REMICADE [Suspect]
     Indication: DRUG EXPOSURE DURING PREGNANCY
     Dosage: MOTHER TOOK INFLIXIMAB FOR FIRST 6 MONTHS OF PREGNANCY
  2. AZATHIOPRINE [Concomitant]

REACTIONS (1)
  - TRANSPOSITION OF THE GREAT VESSELS [None]
